FAERS Safety Report 13135845 (Version 1)
Quarter: 2017Q1

REPORT INFORMATION
  Report Type: Spontaneous
  Country: US (occurrence: US)
  Receive Date: 20170120
  Receipt Date: 20170120
  Transmission Date: 20170428
  Serious: No
  Sender: FDA-Public Use
  Company Number: US-TEVA-727820ACC

PATIENT
  Age: 59 Year
  Sex: Female

DRUGS (1)
  1. CENESTIN [Suspect]
     Active Substance: ESTROGENS, CONJUGATED SYNTHETIC A
     Indication: HOT FLUSH
     Route: 065

REACTIONS (1)
  - Hot flush [Not Recovered/Not Resolved]
